FAERS Safety Report 12169640 (Version 2)
Quarter: 2016Q1

REPORT INFORMATION
  Report Type: Report from Study
  Country: US (occurrence: US)
  Receive Date: 20160310
  Receipt Date: 20160315
  Transmission Date: 20160526
  Serious: Yes (Death, Hospitalization, Disabling)
  Sender: FDA-Public Use
  Company Number: PHEH2016US005696

PATIENT
  Age: 68 Year
  Sex: Male

DRUGS (1)
  1. GILENYA [Suspect]
     Active Substance: FINGOLIMOD HYDROCHLORIDE
     Indication: MULTIPLE SCLEROSIS
     Dosage: 0.5 MG, QD
     Route: 048
     Dates: start: 20151223

REACTIONS (5)
  - Acute myocardial infarction [Fatal]
  - Quadriparesis [Unknown]
  - Pneumonia [Unknown]
  - Cardiac arrest [Fatal]
  - Ventricular fibrillation [Unknown]

NARRATIVE: CASE EVENT DATE: 20160302
